FAERS Safety Report 4692227-9 (Version None)
Quarter: 2005Q2

REPORT INFORMATION
  Report Type: 
  Country: None (occurrence: None)
  Receive Date: 20050614
  Receipt Date: 20050630
  Transmission Date: 20051028
  Serious: Yes (Hospitalization)
  Sender: FDA-Public Use
  Company Number: 200511801GDS

PATIENT
  Sex: Male

DRUGS (4)
  1. ASPIRIN [Suspect]
     Dosage: 100 MG, QD, ORAL
     Route: 048
     Dates: start: 20050501
  2. TENECTEPLASE [Suspect]
     Dosage: SUBCUTANEOUS
     Route: 058
     Dates: start: 20050430
  3. CLOPIDOGREL BISULFATE [Suspect]
     Dosage: 75 MG, TOTAL DAILY, ORAL
     Route: 048
     Dates: start: 20050501
  4. HEPARIN [Suspect]
     Dosage: INTRAVENOUS
     Route: 042
     Dates: start: 20050501

REACTIONS (1)
  - CEREBRAL HAEMORRHAGE [None]
